FAERS Safety Report 12458792 (Version 2)
Quarter: 2016Q3

REPORT INFORMATION
  Report Type: Spontaneous
  Country: FR (occurrence: FR)
  Receive Date: 20160613
  Receipt Date: 20160727
  Transmission Date: 20161109
  Serious: Yes (Death, Hospitalization)
  Sender: FDA-Public Use
  Company Number: FR-PFIZER INC-2016287316

PATIENT
  Age: 55 Year
  Sex: Female

DRUGS (8)
  1. OXYCONTIN [Suspect]
     Active Substance: OXYCODONE HYDROCHLORIDE
     Indication: PAIN
     Dosage: UNK
     Route: 048
     Dates: end: 20160521
  2. BACLOFENE ZENTIVA [Suspect]
     Active Substance: BACLOFEN
     Dosage: 1 DF OF 10 MG, SINGLE IN THE MORNING
     Route: 048
     Dates: start: 20160521, end: 20160521
  3. PREVISCAN [Concomitant]
     Active Substance: FLUINDIONE
  4. EFFEXOR [Concomitant]
     Active Substance: VENLAFAXINE HYDROCHLORIDE
     Dosage: 75 MG, 3X/DAY
  5. BACLOFENE ZENTIVA [Suspect]
     Active Substance: BACLOFEN
     Indication: MYOCLONUS
     Dosage: 1 DF OF 10 MG, SINGLE IN THE EVENING
     Route: 048
     Dates: start: 20160520, end: 20160520
  6. LYRICA [Suspect]
     Active Substance: PREGABALIN
     Dosage: 75 MG, 3X/DAY
     Route: 048
     Dates: end: 20160521
  7. OXYNORM [Suspect]
     Active Substance: OXYCODONE HYDROCHLORIDE
     Indication: PAIN
     Dosage: UNK
     Route: 048
     Dates: end: 20160521
  8. LEVOTHYROX [Concomitant]
     Active Substance: LEVOTHYROXINE
     Dosage: 75 UG, DAILY

REACTIONS (10)
  - Myoclonus [Recovered/Resolved]
  - Disease progression [Fatal]
  - Consciousness fluctuating [Recovered/Resolved]
  - Incoherent [Unknown]
  - Miosis [Unknown]
  - Squamous cell carcinoma of the cervix [Fatal]
  - Motor dysfunction [Unknown]
  - Bradypnoea [Unknown]
  - Condition aggravated [Recovered/Resolved]
  - Dysarthria [Recovered/Resolved]

NARRATIVE: CASE EVENT DATE: 20160521
